FAERS Safety Report 5579290-8 (Version None)
Quarter: 2007Q4

REPORT INFORMATION
  Report Type: 
  Country: None (occurrence: None)
  Receive Date: 20071228
  Receipt Date: 20071213
  Transmission Date: 20080405
  Serious: Yes (Hospitalization, Other)
  Sender: FDA-Public Use
  Company Number: 2007BI017637

PATIENT
  Age: 61 Year
  Sex: Female
  Weight: 63.29 kg

DRUGS (19)
  1. AVONEX [Suspect]
     Indication: MULTIPLE SCLEROSIS
     Dosage: 30 UG; QW; IM
     Route: 030
     Dates: start: 20040512
  2. LEXAPRO [Concomitant]
  3. ALBUTEROL METERED DOSE INHALER [Concomitant]
  4. PULMICORT [Concomitant]
  5. VERAPAMIL [Concomitant]
  6. PLAVIX [Concomitant]
  7. LIPITOR [Concomitant]
  8. ALPRAZOLAM [Concomitant]
  9. GLIPIZIDE [Concomitant]
  10. HUMULIN R [Concomitant]
  11. LANTUS [Concomitant]
  12. OS-CAL [Concomitant]
  13. ASPIRIN [Concomitant]
  14. SPIRIVA [Concomitant]
  15. NITROGLYCERIN [Concomitant]
  16. TUSSIONEX COUGH SYRUP [Concomitant]
  17. PNEUMOVAX 23 [Concomitant]
  18. FLU VACCINE [Concomitant]
  19. TETANUS VACCINE [Concomitant]

REACTIONS (9)
  - CHRONIC OBSTRUCTIVE PULMONARY DISEASE [None]
  - DEHYDRATION [None]
  - HYPOGLYCAEMIA [None]
  - LOBAR PNEUMONIA [None]
  - MULTIPLE SCLEROSIS [None]
  - PNEUMONIA [None]
  - SILENT MYOCARDIAL INFARCTION [None]
  - STRESS CARDIOMYOPATHY [None]
  - TYPE 2 DIABETES MELLITUS [None]
